FAERS Safety Report 4557663-X (Version None)
Quarter: 2005Q1

REPORT INFORMATION
  Report Type: 
  Country: None (occurrence: None)
  Receive Date: 20050120
  Receipt Date: 20050117
  Transmission Date: 20050727
  Serious: Yes (Life-Threatening, Hospitalization, Disabling)
  Sender: FDA-Public Use
  Company Number: US-MERCK-0501USA02576

PATIENT
  Age: 65 Year
  Sex: Female

DRUGS (2)
  1. VYTORIN [Suspect]
     Indication: HYPERCHOLESTEROLAEMIA
     Route: 048
  2. ACETANOL [Concomitant]
     Route: 065

REACTIONS (4)
  - BREAST TENDERNESS [None]
  - DIPLEGIA [None]
  - LYMPHADENOPATHY [None]
  - VASCULAR SKIN DISORDER [None]
